FAERS Safety Report 7402197-8 (Version None)
Quarter: 2011Q2

REPORT INFORMATION
  Report Type: 
  Country: None (occurrence: None)
  Receive Date: 20110408
  Receipt Date: 20110331
  Transmission Date: 20111010
  Serious: Yes (Other)
  Sender: FDA-Public Use
  Company Number: US-ABBOTT-11P-163-0716537-00

PATIENT
  Age: 33 Year
  Sex: Female

DRUGS (5)
  1. DILANTIN [Concomitant]
     Indication: CONVULSION
  2. TOPAMAX [Concomitant]
     Indication: CONVULSION
     Dosage: EVERY AM
  3. HUMIRA [Suspect]
     Indication: PSORIASIS
     Dates: start: 20110110
  4. NEURONTIN [Concomitant]
     Indication: CONVULSION
  5. ALBUTEROL [Concomitant]
     Indication: ASTHMA

REACTIONS (2)
  - DRUG LEVEL DECREASED [None]
  - CONVULSION [None]
